FAERS Safety Report 9723592 (Version 1)
Quarter: 2013Q4

REPORT INFORMATION
  Report Type: Spontaneous
  Country: US (occurrence: US)
  Receive Date: 20131202
  Receipt Date: 20131202
  Transmission Date: 20140711
  Serious: Yes (Death)
  Sender: FDA-Public Use
  Company Number: US-BAYER-2013-141849

PATIENT
  Sex: Male

DRUGS (1)
  1. CIPRO [Suspect]
     Dosage: UNK

REACTIONS (1)
  - Cerebral thrombosis [Fatal]
